FAERS Safety Report 23473616 (Version 1)
Quarter: 2024Q1

REPORT INFORMATION
  Report Type: Spontaneous
  Country: US (occurrence: US)
  Receive Date: 20240203
  Receipt Date: 20240203
  Transmission Date: 20240409
  Serious: No
  Sender: FDA-Public Use
  Company Number: US-Horizon-2020HZN01048

PATIENT

DRUGS (3)
  1. TEPEZZA [Suspect]
     Active Substance: TEPROTUMUMAB-TRBW
     Indication: Endocrine ophthalmopathy
     Dosage: UNK
     Route: 042
     Dates: start: 20200515, end: 20201009
  2. RITUXAN [Concomitant]
     Active Substance: RITUXIMAB
     Dosage: UNK
     Dates: start: 2016, end: 20201009
  3. ALPHA LIPOIC ACID [Concomitant]
     Active Substance: .ALPHA.-LIPOIC ACID

REACTIONS (13)
  - Gingival recession [Unknown]
  - Fatigue [Unknown]
  - Dry eye [Not Recovered/Not Resolved]
  - Dry mouth [Not Recovered/Not Resolved]
  - Hair growth rate abnormal [Not Recovered/Not Resolved]
  - Drug eruption [Unknown]
  - Muscle spasms [Unknown]
  - Eyelid rash [Unknown]
  - Inflammation [Unknown]
  - Infusion site erythema [Recovered/Resolved]
  - Eye irritation [Recovered/Resolved]
  - Migraine [Recovered/Resolved]
  - Therapeutic response unexpected [Unknown]
